FAERS Safety Report 5330557-8 (Version None)
Quarter: 2007Q2

REPORT INFORMATION
  Report Type: 
  Country: None (occurrence: None)
  Receive Date: 20070516
  Receipt Date: 20070510
  Transmission Date: 20071010
  Serious: Yes (Hospitalization)
  Sender: FDA-Public Use
  Company Number: WAES 0704CHN00005

PATIENT
  Age: 56 Year
  Sex: Male

DRUGS (5)
  1. COZAAR [Suspect]
     Indication: CARDIAC FAILURE
     Dates: start: 20040305, end: 20061121
  2. ASPIRIN [Concomitant]
  3. DILTIAZEM HYDROCHLORIDE [Concomitant]
  4. ISOSORBIDE DINITRATE [Concomitant]
  5. METOPROLOL SUCCINATE [Concomitant]

REACTIONS (4)
  - BACK DISORDER [None]
  - BONE DISORDER [None]
  - LUNG NEOPLASM [None]
  - NEOPLASM [None]
